FAERS Safety Report 17692462 (Version 1)
Quarter: 2020Q2

REPORT INFORMATION
  Report Type: Spontaneous
  Country: IR (occurrence: IR)
  Receive Date: 20200422
  Receipt Date: 20200422
  Transmission Date: 20200714
  Serious: Yes (Hospitalization)
  Sender: FDA-Public Use
  Company Number: IR-MYLANLABS-2020M1040495

PATIENT
  Age: 88 Year
  Sex: Female

DRUGS (2)
  1. METHOTREXATE. [Suspect]
     Active Substance: METHOTREXATE
     Indication: PRODUCT USED FOR UNKNOWN INDICATION
     Dosage: FOR 5 CONSECUTIVE MONTHS
     Route: 048
  2. METHOTREXATE. [Suspect]
     Active Substance: METHOTREXATE
     Dosage: 5 DAYS A WEEK IN THE LAST MONTH
     Route: 048

REACTIONS (18)
  - Product dispensing error [Unknown]
  - Face oedema [Unknown]
  - Mucosal inflammation [Unknown]
  - Pruritus [Unknown]
  - Epistaxis [Unknown]
  - Pancytopenia [Unknown]
  - Wrong product administered [Unknown]
  - Nausea [Unknown]
  - Accidental poisoning [Unknown]
  - Dyspepsia [Unknown]
  - Gait disturbance [Unknown]
  - Mucocutaneous disorder [Unknown]
  - Abdominal pain [Unknown]
  - Erythema [Unknown]
  - Dyspnoea [Unknown]
  - Asthenia [Unknown]
  - Stomatitis [Unknown]
  - Vomiting [Unknown]
